FAERS Safety Report 7053724-4 (Version None)
Quarter: 2010Q4

REPORT INFORMATION
  Report Type: 
  Country: None (occurrence: None)
  Receive Date: 20101020
  Receipt Date: 20101005
  Transmission Date: 20110411
  Serious: Yes (Hospitalization)
  Sender: FDA-Public Use
  Company Number: A0846501A

PATIENT
  Age: 70 Year
  Sex: Male
  Weight: 130.2 kg

DRUGS (9)
  1. LIPITOR [Suspect]
     Dosage: 40MG PER DAY
     Route: 048
     Dates: start: 20060607
  2. LOVAZA [Concomitant]
     Dosage: 2G TWICE PER DAY
     Route: 048
     Dates: start: 20080818
  3. BLINDED TRIAL MEDICATION [Concomitant]
     Indication: RHEUMATOID ARTHRITIS
     Route: 048
     Dates: start: 20080917, end: 20090505
  4. NEXIUM [Concomitant]
     Dosage: 20MG PER DAY
  5. LISINOPRIL [Concomitant]
     Dates: start: 20080812
  6. METFORMIN HCL [Concomitant]
  7. WELLBUTRIN XL [Concomitant]
     Dates: start: 20060606
  8. TAMSULOSIN HYDROCHLORIDE [Concomitant]
     Dates: start: 20061102
  9. ZYRTEC [Concomitant]
     Dates: start: 20061102

REACTIONS (8)
  - ABDOMINAL PAIN LOWER [None]
  - BACK PAIN [None]
  - DIVERTICULUM [None]
  - DUODENAL POLYP [None]
  - NEUTROPHIL COUNT INCREASED [None]
  - PANCREATITIS ACUTE [None]
  - PANCREATITIS BACTERIAL [None]
  - WHITE BLOOD CELL COUNT INCREASED [None]
